APPROVED DRUG PRODUCT: OSHIH
Active Ingredient: ETHINYL ESTRADIOL; NORETHINDRONE ACETATE
Strength: 0.02MG;1MG
Dosage Form/Route: TABLET;ORAL
Application: A216558 | Product #001
Applicant: AUROBINDO PHARMA LTD
Approved: Dec 6, 2023 | RLD: No | RS: No | Type: DISCN